FAERS Safety Report 26184667 (Version 1)
Quarter: 2025Q4

REPORT INFORMATION
  Report Type: Spontaneous
  Country: RU (occurrence: RU)
  Receive Date: 20251222
  Receipt Date: 20251222
  Transmission Date: 20260118
  Serious: Yes (Other)
  Sender: ROCHE
  Company Number: RU-ROCHE-10000460604

PATIENT
  Age: 39 Year
  Sex: Female

DRUGS (5)
  1. TRASTUZUMAB [Suspect]
     Active Substance: TRASTUZUMAB
     Indication: Breast cancer
     Dosage: LOADING DOSE 8 MG/KG
  2. PERTUZUMAB [Suspect]
     Active Substance: PERTUZUMAB
     Indication: Breast cancer
     Dosage: LOADING DOSE 840 MG
  3. DOCETAXEL [Suspect]
     Active Substance: DOCETAXEL
     Indication: Breast cancer
  4. GOSERELIN [Concomitant]
     Active Substance: GOSERELIN
     Route: 058
  5. DENOSUMAB [Concomitant]
     Active Substance: DENOSUMAB

REACTIONS (8)
  - Breast cancer [Recovered/Resolved]
  - Metastases to central nervous system [Recovering/Resolving]
  - Headache [Unknown]
  - Dizziness [Unknown]
  - Loss of consciousness [Unknown]
  - Diplopia [Unknown]
  - Metastases to meninges [Unknown]
  - Brain dislocation syndrome [Unknown]

NARRATIVE: CASE EVENT DATE: 20240401
